FAERS Safety Report 10986295 (Version 1)
Quarter: 2015Q2

REPORT INFORMATION
  Report Type: Spontaneous
  Country: GB (occurrence: None)
  Receive Date: 20150402
  Receipt Date: 20150402
  Transmission Date: 20150821
  Serious: Yes (Other)
  Sender: FDA-Public Use
  Company Number: 20150858

PATIENT
  Sex: Female

DRUGS (1)
  1. METOJECT (METHOTREXATE DISODIUM) [Suspect]
     Active Substance: METHOTREXATE SODIUM

REACTIONS (3)
  - Urinary tract infection [None]
  - Cerebrovascular accident [None]
  - Brain neoplasm [None]
